FAERS Safety Report 4679435-8 (Version None)
Quarter: 2005Q2

REPORT INFORMATION
  Report Type: 
  Country: None (occurrence: None)
  Receive Date: 20050602
  Receipt Date: 20050523
  Transmission Date: 20051028
  Serious: Yes (Hospitalization)
  Sender: FDA-Public Use
  Company Number: JP-NOVOPROD-244393

PATIENT
  Sex: Male

DRUGS (4)
  1. NOVOLIN R [Suspect]
     Indication: INSULIN-REQUIRING TYPE II DIABETES MELLITUS
     Dosage: UNKNOWN
     Route: 058
     Dates: start: 20050516, end: 20050520
  2. NOVOLIN N [Suspect]
     Indication: INSULIN-REQUIRING TYPE II DIABETES MELLITUS
     Dosage: UNKNOWN
     Route: 058
     Dates: start: 20050516, end: 20050520
  3. EUGLUCON [Concomitant]
     Dates: end: 20050516
  4. ACTOS [Concomitant]
     Dates: end: 20050516

REACTIONS (1)
  - HEPATIC FUNCTION ABNORMAL [None]
